FAERS Safety Report 20501749 (Version 4)
Quarter: 2022Q2

REPORT INFORMATION
  Report Type: Report from Study
  Country: US (occurrence: US)
  Receive Date: 20220222
  Receipt Date: 20220511
  Transmission Date: 20220720
  Serious: Yes (Hospitalization, Other)
  Sender: FDA-Public Use
  Company Number: US-ABBVIE-22K-163-4285237-00

PATIENT
  Sex: Male

DRUGS (2)
  1. IMBRUVICA [Suspect]
     Active Substance: IBRUTINIB
     Indication: Chronic lymphocytic leukaemia
     Route: 048
     Dates: start: 20211130
  2. CALQUENCE [Concomitant]
     Active Substance: ACALABRUTINIB
     Indication: Product used for unknown indication
     Route: 065

REACTIONS (14)
  - Haemoptysis [Not Recovered/Not Resolved]
  - Angina pectoris [Unknown]
  - Cardiac disorder [Unknown]
  - Oedema [Unknown]
  - Anaemia [Unknown]
  - Vertigo [Unknown]
  - Dysphonia [Unknown]
  - Thyroid function test abnormal [Unknown]
  - Sinus disorder [Unknown]
  - Full blood count increased [Unknown]
  - Insomnia [Unknown]
  - Dizziness [Unknown]
  - Fatigue [Unknown]
  - Asthenia [Unknown]

NARRATIVE: CASE EVENT DATE: 20220101
